FAERS Safety Report 24310481 (Version 1)
Quarter: 2024Q3

REPORT INFORMATION
  Report Type: Spontaneous
  Country: US (occurrence: US)
  Receive Date: 20240912
  Receipt Date: 20240912
  Transmission Date: 20241017
  Serious: Yes (Other)
  Sender: STRIDES
  Company Number: None

PATIENT
  Age: 72 Year
  Sex: Male

DRUGS (10)
  1. FUROSEMIDE [Suspect]
     Active Substance: FUROSEMIDE
     Indication: Chronic kidney disease
     Dosage: 20 MILLIGRAM, QD
     Route: 048
  2. BUSPIRONE HYDROCHLORIDE [Concomitant]
     Active Substance: BUSPIRONE HYDROCHLORIDE
     Indication: Major depression
     Dosage: 15 MILLIGRAM, TID (3 TIMES A DAY)
     Route: 065
  3. DULOXETINE [Concomitant]
     Active Substance: DULOXETINE
     Indication: Major depression
     Dosage: 60 MILLIGRAM, QD
     Route: 065
  4. TRAZODONE [Concomitant]
     Active Substance: TRAZODONE HYDROCHLORIDE
     Indication: Major depression
     Dosage: 50 MILLIGRAM, QD, AT BED TIME
     Route: 065
  5. MIRTAZAPINE [Concomitant]
     Active Substance: MIRTAZAPINE
     Indication: Major depression
     Dosage: 30 MILLIGRAM, QD
     Route: 065
  6. MIRTAZAPINE [Concomitant]
     Active Substance: MIRTAZAPINE
     Dosage: 15 MILLIGRAM, QD, AT BEDTIME
     Route: 065
  7. MIRTAZAPINE [Concomitant]
     Active Substance: MIRTAZAPINE
     Dosage: 15 MILLIGRAM, QD (AT DISCHARGE)
     Route: 065
  8. AMLODIPINE [Concomitant]
     Active Substance: AMLODIPINE BESYLATE
     Indication: Hypertension
     Dosage: 5 MILLIGRAM, BID
     Route: 065
  9. LISINOPRIL [Concomitant]
     Active Substance: LISINOPRIL
     Indication: Hypertension
     Dosage: 2.5 MILLIGRAM, QD
     Route: 065
  10. LISINOPRIL [Concomitant]
     Active Substance: LISINOPRIL
     Dosage: 10 MILLIGRAM, QD (INCREASING DOSE)
     Route: 065

REACTIONS (1)
  - Hypokalaemia [Unknown]
